FAERS Safety Report 25876707 (Version 1)
Quarter: 2025Q4

REPORT INFORMATION
  Report Type: Report from Study
  Country: CA (occurrence: CA)
  Receive Date: 20251003
  Receipt Date: 20251003
  Transmission Date: 20260118
  Serious: Yes (Hospitalization, Other)
  Sender: SAMSUNG BIOEPIS
  Company Number: CA-SAMSUNG BIOEPIS-SB-2025-27561

PATIENT
  Age: 69 Year
  Sex: Female

DRUGS (4)
  1. ETANERCEPT [Suspect]
     Active Substance: ETANERCEPT
     Indication: Rheumatoid arthritis
     Dates: start: 20250413
  2. METHOTREXATE [Suspect]
     Active Substance: METHOTREXATE
     Indication: Product used for unknown indication
  3. FOLIC ACID [Concomitant]
     Active Substance: FOLIC ACID
     Indication: Product used for unknown indication
  4. ERGOCALCIFEROL [Concomitant]
     Active Substance: ERGOCALCIFEROL
     Indication: Product used for unknown indication

REACTIONS (16)
  - Pneumonia [Recovered/Resolved]
  - Malaise [Unknown]
  - Decreased immune responsiveness [Unknown]
  - Pneumonitis [Recovered/Resolved]
  - Pulmonary congestion [Recovered/Resolved]
  - Fatigue [Recovered/Resolved]
  - Pulmonary mass [Unknown]
  - Nasopharyngitis [Recovered/Resolved]
  - Headache [Unknown]
  - Chills [Unknown]
  - Illness [Unknown]
  - Lethargy [Unknown]
  - Wheezing [Unknown]
  - Neck pain [Unknown]
  - Somnolence [Recovered/Resolved]
  - Device issue [Unknown]

NARRATIVE: CASE EVENT DATE: 20250701
